FAERS Safety Report 11284643 (Version 1)
Quarter: 2015Q3

REPORT INFORMATION
  Report Type: Spontaneous
  Country: US (occurrence: US)
  Receive Date: 20150720
  Receipt Date: 20150720
  Transmission Date: 20151125
  Serious: No
  Sender: FDA-Public Use
  Company Number: US-BAUSCH-BL-2015-002072

PATIENT
  Age: 76 Year
  Sex: Female

DRUGS (3)
  1. LACRISERT [Suspect]
     Active Substance: HYDROXYPROPYL CELLULOSE
     Indication: DRY EYE
     Dosage: INITIALLY TOOK IN THE MORNING
     Route: 047
     Dates: start: 201501, end: 201501
  2. LACRISERT [Suspect]
     Active Substance: HYDROXYPROPYL CELLULOSE
     Dosage: INITIALLY TOOK IN THE EVENING
     Route: 047
     Dates: start: 20150126
  3. RESTASIS [Concomitant]
     Active Substance: CYCLOSPORINE
     Indication: PRODUCT USED FOR UNKNOWN INDICATION

REACTIONS (5)
  - Vision blurred [Recovered/Resolved]
  - Drug ineffective [Unknown]
  - Lacrimation increased [Recovered/Resolved]
  - Abnormal sensation in eye [Not Recovered/Not Resolved]
  - Product solubility abnormal [Unknown]

NARRATIVE: CASE EVENT DATE: 201501
